FAERS Safety Report 11393965 (Version 1)
Quarter: 2015Q3

REPORT INFORMATION
  Report Type: Spontaneous
  Country: US (occurrence: None)
  Receive Date: 20150817
  Receipt Date: 20150817
  Transmission Date: 20151125
  Serious: Yes (Hospitalization)
  Sender: FDA-Public Use
  Company Number: None

PATIENT
  Age: 33 Year
  Sex: Male

DRUGS (1)
  1. ALPHANINE SD [Suspect]
     Active Substance: COAGULATION FACTOR IX HUMAN
     Indication: FACTOR IX DEFICIENCY
     Dosage: 5000 UNITS  EVERY 3 DAYS OR AS NEEDED FOR    INTRAVENOUS??FROM BIRTH TO CURRENT?
     Route: 042

REACTIONS (2)
  - Haemarthrosis [None]
  - Hypoaesthesia [None]

NARRATIVE: CASE EVENT DATE: 20150811
